FAERS Safety Report 12938470 (Version 3)
Quarter: 2017Q2

REPORT INFORMATION
  Report Type: Spontaneous
  Country: US (occurrence: US)
  Receive Date: 20161114
  Receipt Date: 20170504
  Transmission Date: 20170830
  Serious: Yes (Death)
  Sender: FDA-Public Use
  Company Number: US-ACADIA PHARMACEUTICALS INC.-ACA-2016-000375

PATIENT
  Age: 81 Year
  Sex: Male
  Weight: 76.19 kg

DRUGS (1)
  1. NUPLAZID [Suspect]
     Active Substance: PIMAVANSERIN TARTRATE
     Indication: PARKINSON^S DISEASE PSYCHOSIS
     Dosage: 34 MG, QD
     Route: 048
     Dates: start: 20160821, end: 20170418

REACTIONS (2)
  - Hallucination [Recovered/Resolved]
  - Death [Fatal]

NARRATIVE: CASE EVENT DATE: 201608
